FAERS Safety Report 19173129 (Version 1)
Quarter: 2021Q2

REPORT INFORMATION
  Report Type: Spontaneous
  Country: US (occurrence: US)
  Receive Date: 20210422
  Receipt Date: 20210422
  Transmission Date: 20210717
  Serious: No
  Sender: FDA-Public Use
  Company Number: None

PATIENT
  Sex: Female

DRUGS (1)
  1. IBRANCE [Suspect]
     Active Substance: PALBOCICLIB
     Indication: PRODUCT USED FOR UNKNOWN INDICATION
     Dosage: ?          QUANTITY:1 TABLET(S);OTHER FREQUENCY:TAKE 1 TABLET BY M;?
     Route: 048

REACTIONS (2)
  - Dysgeusia [None]
  - Ocular discomfort [None]
